FAERS Safety Report 17899798 (Version 1)
Quarter: 2020Q2

REPORT INFORMATION
  Report Type: Spontaneous
  Country: US (occurrence: US)
  Receive Date: 20200615
  Receipt Date: 20200615
  Transmission Date: 20200714
  Serious: Yes (Hospitalization)
  Sender: FDA-Public Use
  Company Number: None

PATIENT
  Age: 71 Year
  Sex: Male

DRUGS (1)
  1. GLIPIZIDE (GLIPIZIDE 5MG TAB) [Suspect]
     Active Substance: GLIPIZIDE
     Indication: DIABETES MELLITUS
     Route: 048
     Dates: start: 20121227, end: 20200422

REACTIONS (6)
  - Skin abrasion [None]
  - Rash pruritic [None]
  - Rash [None]
  - Petechiae [None]
  - Rash macular [None]
  - Skin hyperpigmentation [None]

NARRATIVE: CASE EVENT DATE: 20200516
